FAERS Safety Report 13027960 (Version 3)
Quarter: 2017Q1

REPORT INFORMATION
  Report Type: Spontaneous
  Country: PL (occurrence: PL)
  Receive Date: 20161214
  Receipt Date: 20170120
  Transmission Date: 20170428
  Serious: Yes (Death, Other)
  Sender: FDA-Public Use
  Company Number: PL-PFIZER INC-2016579235

PATIENT
  Age: 75 Year
  Sex: Female

DRUGS (52)
  1. AMBROHEXAL [Concomitant]
     Active Substance: AMBROXOL HYDROCHLORIDE
     Dosage: 15 MG/2 ML (1 D)
     Route: 030
     Dates: start: 20160615, end: 20160624
  2. CORHYDRON /00028601/ [Concomitant]
     Dosage: 100 MG, 1X/DAY
     Route: 042
     Dates: start: 20160615, end: 20160624
  3. KVENTIAX [Concomitant]
     Active Substance: QUETIAPINE FUMARATE
     Dosage: 25 MG, UNK
     Dates: start: 20160615, end: 20160624
  4. MIDANIUM [Concomitant]
     Active Substance: MIDAZOLAM HYDROCHLORIDE
     Dosage: 5 MG/ML, 1X/DAY
     Dates: start: 20160615, end: 20160624
  5. THEOSPIREX /00012201/ [Concomitant]
     Dosage: 0.2 G/ 10 ML (1 D)UNK
     Dates: start: 20160615, end: 20160624
  6. VFEND [Concomitant]
     Active Substance: VORICONAZOLE
     Dosage: 200 MG, 1X/DAY
     Dates: start: 20160615, end: 20160624
  7. NOVORAPID [Concomitant]
     Active Substance: INSULIN ASPART
     Dosage: 100 IU/ML, 1X/DAY
     Dates: start: 20160615, end: 20160624
  8. TULIP /01326102/ [Concomitant]
     Dosage: 20 MG, 1X/DAY
     Dates: start: 20160615, end: 20160624
  9. ARIXTRA [Concomitant]
     Active Substance: FONDAPARINUX SODIUM
     Dosage: 2.5 MG/0.5 ML (1 D)
     Dates: start: 20160615, end: 20160624
  10. CIPROFLOXACIN KABI /00697203/ [Concomitant]
     Dosage: 200 MG/100 ML (1 D)
     Dates: start: 20160615, end: 20160624
  11. DOBUJECT [Concomitant]
     Dosage: 50 MG/ML, 1X/DAY
     Route: 042
     Dates: start: 20160615, end: 20160624
  12. FRAXIPARINE [Concomitant]
     Active Substance: NADROPARIN CALCIUM
     Dosage: 2850 J., ANTI-XA/0.3ML
     Route: 058
     Dates: start: 20160615, end: 20160624
  13. FRAXIPARINE [Concomitant]
     Active Substance: NADROPARIN CALCIUM
     Dosage: 2850 J., ANTI-XA/0.3ML
     Route: 042
     Dates: start: 20160615, end: 20160624
  14. GLUCOSUM [Concomitant]
     Dosage: 5 %, UNK
     Route: 042
     Dates: start: 20160615, end: 20160624
  15. NATRIUM BICARBONICUM [Concomitant]
     Dosage: 84 MG/ML, 1X/DAY
     Route: 042
     Dates: start: 20160615, end: 20160624
  16. BIOFUROKSYM [Concomitant]
     Active Substance: CEFUROXIME SODIUM
     Dosage: 1500 MG, 1X/DAY
     Route: 042
     Dates: start: 20160615, end: 20160624
  17. FLEXBUMIN [Concomitant]
     Active Substance: ALBUMIN HUMAN
     Dosage: 20 %, 1X/DAY (200MG/1ML)
     Dates: start: 20160615, end: 20160624
  18. KALIUM CHLORATUM [Concomitant]
     Active Substance: POTASSIUM CHLORIDE
     Dosage: 15 %, 2MEQK+/ML (1 D)
     Dates: start: 20160615, end: 20160624
  19. KALIUM CHLORATUM [Concomitant]
     Active Substance: POTASSIUM CHLORIDE
     Dosage: 15 %, 2MEQK+/ML (1 D)
     Dates: start: 20160615
  20. AMIOKORDIN [Concomitant]
     Dosage: 0.15 MG/3 ML (1 D)
     Dates: start: 20160615, end: 20160624
  21. CALCIO GLUCONATO [Concomitant]
     Active Substance: CALCIUM GLUCONATE
     Dosage: 1000 MG/10 ML (1 D)
     Dates: start: 20160615, end: 20160624
  22. CALCIUM CHLORATUM /07362501/ [Concomitant]
     Dosage: 670 MG/10 ML (1 D)
     Route: 042
     Dates: start: 20160615, end: 20160624
  23. KETONAL /00321701/ [Concomitant]
     Active Substance: KETOPROFEN
     Dosage: 100 MG/2 ML (1 D)
     Dates: start: 20160615, end: 20160624
  24. METHOTREXATE SODIUM. [Suspect]
     Active Substance: METHOTREXATE SODIUM
     Dosage: 4 DF, 2X/WEEK
     Route: 048
     Dates: start: 20160615, end: 20160630
  25. BIOFUROKSYM [Concomitant]
     Active Substance: CEFUROXIME SODIUM
     Dosage: 750 MG, 1X/DAY
     Route: 030
     Dates: start: 20160615, end: 20160624
  26. HEPA-MERZ /01390204/ [Concomitant]
     Dosage: 5 G/10 ML (1 D)
     Route: 042
     Dates: start: 20160615, end: 20160624
  27. MAGNESII SULFAS [Concomitant]
     Dosage: 20 %, 2000 MG/10 ML (1 D)
     Dates: start: 20160615, end: 20160624
  28. NEORELIUM [Concomitant]
     Dosage: 10 MG/2 ML (1 D)
     Dates: start: 20160615, end: 20160624
  29. OPACORDEN [Concomitant]
     Active Substance: AMIODARONE HYDROCHLORIDE
     Dosage: 200 MG, 1X/DAY
     Dates: start: 20160615, end: 20160624
  30. PROXACIN /00697201/ [Concomitant]
     Dosage: 200 MG/20 ML (1 D)
     Route: 042
     Dates: start: 20160615, end: 20160624
  31. METYPRED /00049601/ [Suspect]
     Active Substance: METHYLPREDNISOLONE
     Dosage: 4 MG, 1X/DAY
     Dates: start: 20160615, end: 20160624
  32. AMBROHEXAL [Concomitant]
     Active Substance: AMBROXOL HYDROCHLORIDE
     Dosage: 15 MG/2 ML (1 D)
     Route: 058
     Dates: start: 20160615, end: 20160624
  33. CYCLONAMINE [Concomitant]
     Active Substance: ETHAMSYLATE
     Dosage: 250 MG/2 ML (1 D)
     Dates: start: 20160615, end: 20160624
  34. HALOPERIDOL. [Concomitant]
     Active Substance: HALOPERIDOL
     Dosage: 5 MG/ML, 1X/DAY
     Route: 030
     Dates: start: 20160615, end: 20160624
  35. HEPARINUM /00027704/ [Concomitant]
     Dosage: 25000 IU/5 ML (1 D)
     Route: 058
     Dates: start: 20160615, end: 20160624
  36. ERYTHROMYCINUM /00020901/ [Concomitant]
     Dosage: 300 MG, 1X/DAY
     Route: 042
     Dates: start: 20160615, end: 20160624
  37. METOPROLOL TARTRATE. [Concomitant]
     Active Substance: METOPROLOL TARTRATE
     Dosage: 50 MG, 1X/DAY
     Dates: start: 20160615, end: 20160624
  38. VFEND [Concomitant]
     Active Substance: VORICONAZOLE
     Dosage: 0.2 G/ 10 ML (0.2 G,1 D)
     Dates: start: 20160615, end: 20160624
  39. VITAMINUM B COMPOSITUM [Concomitant]
     Dosage: UNK
     Dates: start: 20160615, end: 20160624
  40. AMBROHEXAL [Concomitant]
     Active Substance: AMBROXOL HYDROCHLORIDE
     Dosage: 15 MG/2 ML (1 D)
     Route: 042
     Dates: start: 20160615, end: 20160624
  41. ATROVENT [Concomitant]
     Active Substance: IPRATROPIUM BROMIDE
     Dosage: 0.25 MG/ML (1 D)
     Route: 055
     Dates: start: 20160615, end: 20160624
  42. DEXAK [Concomitant]
     Dosage: 50 MG/2 ML (1 D)
     Dates: start: 20160615, end: 20160624
  43. DEXDOR [Concomitant]
     Active Substance: DEXMEDETOMIDINE HYDROCHLORIDE
     Dosage: 0.2 MG/2 ML (1 D)
     Dates: start: 20160615, end: 20160624
  44. MAGNESII SULFAS [Concomitant]
     Dosage: 20 %, 2000 MG/10 ML (1 D)
     Route: 042
  45. LEVONOR /00127502/ [Concomitant]
     Dosage: 1 MG/ML, 1X/DAY
     Route: 042
     Dates: start: 20160615, end: 20160624
  46. LIGNOCAINUM HYDROCHLORICUM [Concomitant]
     Dosage: 400 MG/20 ML, 2% (1 D)
     Route: 042
     Dates: start: 20160615, end: 20160624
  47. MERONEM [Concomitant]
     Active Substance: MEROPENEM
     Dosage: 1000 MG, 1X/DAY
     Route: 042
     Dates: start: 20160615, end: 20160624
  48. METOCLOPRAMIDUM [Concomitant]
     Dosage: 10 MG/2 ML (1 D)
     Dates: start: 20160615, end: 20160624
  49. NATRII CHLORIDUM [Concomitant]
     Dosage: 84 MG/ML, 1X/DAY
     Route: 042
     Dates: start: 20160615, end: 20160624
  50. NEXIUM [Concomitant]
     Active Substance: ESOMEPRAZOLE MAGNESIUM
     Dosage: 40 MG, 1X/DAY
     Dates: start: 20160615, end: 20160624
  51. VOLULYTE [Concomitant]
     Dosage: 500 ML, 1X/DAY
     Dates: start: 20160615, end: 20160624
  52. OPTILYTE [Concomitant]
     Dosage: UNK
     Dates: start: 20160615, end: 20160624

REACTIONS (2)
  - Pancytopenia [Fatal]
  - Systemic infection [Fatal]

NARRATIVE: CASE EVENT DATE: 20160618
